FAERS Safety Report 23883820 (Version 1)
Quarter: 2024Q2

REPORT INFORMATION
  Report Type: Spontaneous
  Country: CN (occurrence: CN)
  Receive Date: 20240522
  Receipt Date: 20240522
  Transmission Date: 20240716
  Serious: Yes (Other)
  Sender: FDA-Public Use
  Company Number: CN-JNJFOC-20240542044

PATIENT

DRUGS (2)
  1. REMICADE [Suspect]
     Active Substance: INFLIXIMAB
     Indication: Rheumatoid arthritis
     Route: 041
  2. REMICADE [Suspect]
     Active Substance: INFLIXIMAB
     Indication: Crohn^s disease

REACTIONS (100)
  - Takayasu^s arteritis [Unknown]
  - Cardiac sarcoidosis [Unknown]
  - Bladder dysplasia [Unknown]
  - Cortical dysplasia [Unknown]
  - Behcet^s syndrome [Unknown]
  - IgA nephropathy [Unknown]
  - Central nervous system inflammation [Unknown]
  - VACTERL syndrome [Unknown]
  - Pleuropericarditis [Unknown]
  - Pulmonary sequestration [Unknown]
  - Vesical fistula [Unknown]
  - Coronary artery aneurysm [Unknown]
  - Pulmonary tuberculosis [Unknown]
  - Tuberculosis [Unknown]
  - Skin cancer [Unknown]
  - Respiratory tract carcinoma in situ [Unknown]
  - Systemic lupus erythematosus [Unknown]
  - Lupus-like syndrome [Unknown]
  - Clostridium difficile infection [Unknown]
  - Lymphoma [Unknown]
  - Arrhythmia [Unknown]
  - Cardiac failure congestive [Unknown]
  - Squamous cell carcinoma [Unknown]
  - Malignant melanoma [Unknown]
  - Lupus hepatitis [Unknown]
  - Pyoderma gangrenosum [Unknown]
  - Renal amyloidosis [Unknown]
  - Basal cell carcinoma [Unknown]
  - Sarcoidosis [Unknown]
  - Cholangitis sclerosing [Unknown]
  - Demyelination [Unknown]
  - Granulomatous liver disease [Unknown]
  - Pericarditis [Unknown]
  - Infective iritis [Unknown]
  - Mycobacterium marinum infection [Unknown]
  - Uveitis [Unknown]
  - Neurosarcoidosis [Unknown]
  - Linitis plastica [Unknown]
  - Disseminated tuberculosis [Unknown]
  - Demyelinating polyneuropathy [Unknown]
  - Malignant respiratory tract neoplasm [Unknown]
  - Coronary artery occlusion [Unknown]
  - B-cell unclassifiable lymphoma low grade [Unknown]
  - Spleen tuberculosis [Unknown]
  - Scleritis [Unknown]
  - Vasa praevia [Unknown]
  - Herpes zoster [Unknown]
  - Infusion related reaction [Unknown]
  - Blood pressure fluctuation [Unknown]
  - Heart rate decreased [Unknown]
  - Drug level below therapeutic [Unknown]
  - Panel-reactive antibody [Unknown]
  - Contraindication to vaccination [Unknown]
  - Double stranded DNA antibody [Unknown]
  - Bence Jones protein urine [Unknown]
  - Drug specific antibody [Unknown]
  - Heart rate irregular [Unknown]
  - Drug level decreased [Unknown]
  - Abscess [Unknown]
  - Chronic granulomatous disease [Unknown]
  - Anti-saccharomyces cerevisiae antibody [Unknown]
  - Cytogenetic abnormality [Unknown]
  - Infusion site extravasation [Unknown]
  - Frequent bowel movements [Unknown]
  - Tenosynovitis [Unknown]
  - Erythema nodosum [Unknown]
  - Pustular psoriasis [Unknown]
  - Hidradenitis [Unknown]
  - Dermatitis psoriasiform [Unknown]
  - Iritis [Unknown]
  - Scleral discolouration [Unknown]
  - Episcleritis [Unknown]
  - Serum sickness [Unknown]
  - Type IV hypersensitivity reaction [Unknown]
  - Serum sickness-like reaction [Unknown]
  - Infusion related hypersensitivity reaction [Unknown]
  - Weight fluctuation [Unknown]
  - Tachycardia paroxysmal [Unknown]
  - Mononeuropathy multiplex [Unknown]
  - Pharyngeal paraesthesia [Unknown]
  - Suffocation feeling [Unknown]
  - Sinus pain [Unknown]
  - Alveolitis [Unknown]
  - Rheumatoid lung [Unknown]
  - Cervical dysplasia [Unknown]
  - Female genital tract fistula [Unknown]
  - Vaginal fistula [Unknown]
  - Bartholin^s cyst [Unknown]
  - Adhesion [Unknown]
  - Adenomatous polyposis coli [Unknown]
  - Lymphoid tissue hyperplasia [Unknown]
  - Hyperchromasia [Unknown]
  - Cyclic neutropenia [Unknown]
  - Spherocytic anaemia [Unknown]
  - Thyroiditis [Unknown]
  - Ear inflammation [Unknown]
  - Red ear syndrome [Unknown]
  - Ossicle disorder [Unknown]
  - Exposure during pregnancy [Unknown]
  - Loss of therapeutic response [Unknown]
